FAERS Safety Report 25551679 (Version 1)
Quarter: 2025Q3

REPORT INFORMATION
  Report Type: Spontaneous
  Country: US (occurrence: None)
  Receive Date: 20250714
  Receipt Date: 20250714
  Transmission Date: 20251020
  Serious: Yes (Other)
  Sender: FDA-CTU
  Company Number: None

PATIENT
  Age: 34 Year
  Sex: Female

DRUGS (1)
  1. DICYCLOMINE [Suspect]
     Active Substance: DICYCLOMINE HYDROCHLORIDE
     Indication: Irritable bowel syndrome
     Dates: start: 20231204, end: 20231209

REACTIONS (7)
  - Collagen disorder [None]
  - Visual impairment [None]
  - Diarrhoea [None]
  - Anal incontinence [None]
  - Somatic symptom disorder [None]
  - Vision blurred [None]
  - Bradycardia [None]

NARRATIVE: CASE EVENT DATE: 20231209
